FAERS Safety Report 25706519 (Version 1)
Quarter: 2025Q3

REPORT INFORMATION
  Report Type: Spontaneous
  Country: US (occurrence: US)
  Receive Date: 20250820
  Receipt Date: 20250820
  Transmission Date: 20251021
  Serious: No
  Sender: CATALYST PHARMA
  Company Number: US-CATALYST PHARMACEUTICALS-US-CATA-25-00801

PATIENT
  Sex: Male
  Weight: 40.363 kg

DRUGS (7)
  1. AGAMREE [Suspect]
     Active Substance: VAMOROLONE
     Indication: Duchenne muscular dystrophy
     Dosage: 5.8 ML DAILY
     Route: 048
     Dates: start: 20240522, end: 2024
  2. AGAMREE [Suspect]
     Active Substance: VAMOROLONE
     Dosage: 4.5 ML DAILY
     Route: 048
     Dates: start: 20240917
  3. METFORMIN [Concomitant]
     Active Substance: METFORMIN HYDROCHLORIDE
     Indication: Diabetes mellitus management
     Dosage: 1000 MG TWICE DAILY
     Route: 048
  4. LISINOPRIL [Concomitant]
     Active Substance: LISINOPRIL
     Indication: Cardiovascular event prophylaxis
     Dosage: 5 MG DAILY
     Route: 048
  5. FAMOTIDINE [Concomitant]
     Active Substance: FAMOTIDINE
     Indication: Gastrointestinal disorder prophylaxis
     Dosage: 20 MG DAILY
     Route: 048
  6. MELATONIN [Concomitant]
     Active Substance: MELATONIN
     Indication: Insomnia
     Route: 048
  7. VITAMIN D3 [Concomitant]
     Active Substance: CHOLECALCIFEROL
     Indication: Hypovitaminosis
     Dosage: 4000 IU DAILY
     Route: 048

REACTIONS (2)
  - Pain in extremity [Recovered/Resolved]
  - Product dose omission issue [Recovered/Resolved]
